APPROVED DRUG PRODUCT: AZELASTINE HYDROCHLORIDE
Active Ingredient: AZELASTINE HYDROCHLORIDE
Strength: 0.2055MG/SPRAY
Dosage Form/Route: SPRAY, METERED;NASAL
Application: A201846 | Product #001
Applicant: APOTEX INC
Approved: Aug 31, 2012 | RLD: No | RS: No | Type: DISCN